FAERS Safety Report 10006302 (Version 2)
Quarter: 2014Q2

REPORT INFORMATION
  Report Type: Spontaneous
  Country: FR (occurrence: FR)
  Receive Date: 20140313
  Receipt Date: 20140430
  Transmission Date: 20141212
  Serious: Yes (Hospitalization, Other)
  Sender: FDA-Public Use
  Company Number: FR-ASTRAZENECA-2014SE16166

PATIENT
  Age: 96 Year
  Sex: Female

DRUGS (8)
  1. ZESTORETIC [Suspect]
     Indication: HYPERTENSION
     Dosage: 20 MG /12.5 MG, 1 DF EVERY DAY
     Route: 048
  2. LUMIRELAX [Suspect]
     Route: 048
  3. TRANSIPEG [Concomitant]
     Route: 048
  4. FOLIC ACID [Concomitant]
     Route: 048
  5. INEXIUM [Concomitant]
     Route: 048
  6. LASILIX [Concomitant]
     Route: 048
  7. KARDEGIC [Concomitant]
     Route: 048
  8. UVEDOSE [Concomitant]
     Route: 048

REACTIONS (7)
  - Fall [Not Recovered/Not Resolved]
  - Head injury [Unknown]
  - Vertigo [Not Recovered/Not Resolved]
  - Orthostatic hypotension [Unknown]
  - Executive dysfunction [Unknown]
  - Disturbance in attention [Unknown]
  - Memory impairment [Unknown]
